FAERS Safety Report 7862792-9 (Version None)
Quarter: 2011Q4

REPORT INFORMATION
  Report Type: 
  Country: None (occurrence: None)
  Receive Date: 20111027
  Receipt Date: 20101115
  Transmission Date: 20120403
  Serious: No
  Sender: FDA-Public Use
  Company Number: US-AMGEN-USASP2010005166

PATIENT
  Age: 66 Year
  Sex: Female

DRUGS (8)
  1. RELAFEN [Concomitant]
  2. METHOTREXATE [Concomitant]
  3. ENBREL [Suspect]
     Indication: RHEUMATOID ARTHRITIS
     Dosage: 50 MG, UNK
     Route: 058
  4. PREDNISONE [Concomitant]
  5. CALCIUM CARBONATE [Concomitant]
  6. VITAMIN D [Concomitant]
  7. FOLIC ACID [Concomitant]
  8. FOSAMAX [Concomitant]

REACTIONS (5)
  - THERAPEUTIC RESPONSE DECREASED [None]
  - ARTHRALGIA [None]
  - JOINT STIFFNESS [None]
  - RHEUMATOID ARTHRITIS [None]
  - JOINT SWELLING [None]
